FAERS Safety Report 23389142 (Version 2)
Quarter: 2024Q1

REPORT INFORMATION
  Report Type: Spontaneous
  Country: US (occurrence: US)
  Receive Date: 20240110
  Receipt Date: 20240122
  Transmission Date: 20240410
  Serious: Yes (Other)
  Sender: FDA-Public Use
  Company Number: US-FMCRTG-FMC-2312-001483

PATIENT
  Age: 72 Year
  Sex: Male
  Weight: 75 kg

DRUGS (1)
  1. DELFLEX [Suspect]
     Active Substance: CALCIUM CHLORIDE\DEXTROSE\MAGNESIUM CHLORIDE\SODIUM CHLORIDE\SODIUM LACTATE
     Indication: End stage renal disease
     Route: 033

REACTIONS (4)
  - Loss of consciousness [Unknown]
  - Vomiting [Unknown]
  - Blood glucose increased [Unknown]
  - Dizziness [Unknown]

NARRATIVE: CASE EVENT DATE: 20231220
